FAERS Safety Report 7409975-X (Version None)
Quarter: 2011Q2

REPORT INFORMATION
  Report Type: 
  Country: None (occurrence: None)
  Receive Date: 20110412
  Receipt Date: 20110305
  Transmission Date: 20111010
  Serious: Yes (Disabling)
  Sender: FDA-Public Use
  Company Number: FR-ABBOTT-96I-056-0070896-00

PATIENT
  Sex: Male

DRUGS (6)
  1. GLYCINE 1.5% [Concomitant]
     Route: 048
  2. LUCRIN DEPOT INJECTION [Suspect]
     Indication: PROSTATE CANCER
     Route: 058
     Dates: start: 19951124
  3. ACETYL SALICYLIC ACID COMPOUND TAB [Concomitant]
     Route: 048
  4. FLUINDIONE [Concomitant]
     Route: 048
     Dates: start: 19950901
  5. CAPTOPRIL [Concomitant]
     Route: 048
     Dates: start: 19950901
  6. MOLSIDOMINE [Concomitant]
     Route: 048
     Dates: start: 19950901

REACTIONS (1)
  - RETINAL VEIN THROMBOSIS [None]
